FAERS Safety Report 5196906-9 (Version None)
Quarter: 2006Q4

REPORT INFORMATION
  Report Type: 
  Country: None (occurrence: None)
  Receive Date: 20061227
  Receipt Date: 20061219
  Transmission Date: 20070319
  Serious: Yes (Hospitalization)
  Sender: FDA-Public Use
  Company Number: TAP2006Q01614

PATIENT
  Age: 85 Year
  Sex: Male
  Weight: 71.36 kg

DRUGS (12)
  1. LUPRON DEPOT-4 [Suspect]
     Indication: PROSTATE CANCER
     Dosage: 30 MG, 1 IN 4 M, INTRAMUSCULAR
     Route: 030
     Dates: start: 20060523, end: 20061017
  2. ASAPHEN (ACETYLSALICYLIC ACID) [Concomitant]
  3. FORZA-10 [Concomitant]
  4. THIAMINE [Concomitant]
  5. CASODEX [Concomitant]
  6. ARICEPT [Concomitant]
  7. RIVA-K20 SR [Concomitant]
  8. NOVO-SEMIDE (FUROSEMIDE) [Concomitant]
  9. PANTOPRAZOLE SODIUM [Concomitant]
  10. SEROQUEL [Concomitant]
  11. APO-ACETAMINOPHEN (PARACETAMOL) [Concomitant]
  12. UNSPECIFIED ^PUFFERS^ [Concomitant]

REACTIONS (6)
  - ASTHMA [None]
  - COLLAPSE OF LUNG [None]
  - COUGH [None]
  - DYSPNOEA [None]
  - PITTING OEDEMA [None]
  - PULMONARY OEDEMA [None]
